FAERS Safety Report 6082441-2 (Version None)
Quarter: 2009Q1

REPORT INFORMATION
  Report Type: 
  Country: None (occurrence: None)
  Receive Date: 20090218
  Receipt Date: 20090205
  Transmission Date: 20090719
  Serious: Yes (Hospitalization)
  Sender: FDA-Public Use
  Company Number: US-ROCHE-581924

PATIENT
  Sex: Female
  Weight: 66.2 kg

DRUGS (2)
  1. CAPECITABINE [Suspect]
     Indication: BREAST CANCER
     Route: 048
     Dates: start: 20080507
  2. MORPHINE [Suspect]
     Indication: PAIN
     Route: 065

REACTIONS (2)
  - BRONCHITIS [None]
  - FAECALOMA [None]
